FAERS Safety Report 7159266-X (Version None)
Quarter: 2010Q4

REPORT INFORMATION
  Report Type: 
  Country: None (occurrence: None)
  Receive Date: 20101214
  Receipt Date: 20100804
  Transmission Date: 20110411
  Serious: No
  Sender: FDA-Public Use
  Company Number: US-ASTRAZENECA-2010SE36554

PATIENT
  Age: 55 Year
  Sex: Male
  Weight: 84.4 kg

DRUGS (8)
  1. CRESTOR [Suspect]
     Route: 048
  2. NIASPAN [Suspect]
     Indication: HIGH DENSITY LIPOPROTEIN DECREASED
     Route: 065
     Dates: start: 20100321
  3. METFORMIN [Concomitant]
  4. CLOPIDOGREL [Concomitant]
  5. RIPIRL [Concomitant]
  6. GENUVIA [Concomitant]
  7. CENTRUM DAILY MULTIVITAMIN [Concomitant]
  8. ASPIRIN [Concomitant]

REACTIONS (3)
  - FLUSHING [None]
  - HEADACHE [None]
  - MYALGIA [None]
